FAERS Safety Report 8909343 (Version 1)
Quarter: 2012Q4

REPORT INFORMATION
  Report Type: 
  Country: US (occurrence: None)
  Receive Date: 20121107
  Receipt Date: 20121107
  Transmission Date: 20130627
  Serious: Yes (Other)
  Sender: FDA-Public Use
  Company Number: 2012MA012800

PATIENT
  Age: 74 Year
  Sex: Female
  Weight: 68.95 kg

DRUGS (4)
  1. TRIPLE ANTIBIOTIC OINTMENT [Suspect]
     Indication: DOG SCRATCH
     Route: 061
     Dates: start: 20121001, end: 20121022
  2. CRESTOR [Concomitant]
  3. HIGH BLOOD PRESSURE MEDICATION NOS [Concomitant]
  4. IBUPROFEN [Concomitant]

REACTIONS (4)
  - Inflammation [None]
  - Oedema peripheral [None]
  - Physical product label issue [None]
  - Rash pruritic [None]
